FAERS Safety Report 4933004-0 (Version None)
Quarter: 2006Q1

REPORT INFORMATION
  Report Type: 
  Country: None (occurrence: None)
  Receive Date: 20060306
  Receipt Date: 20051101
  Transmission Date: 20060701
  Serious: Yes (Hospitalization)
  Sender: FDA-Public Use
  Company Number: PHBS2005JP16191

PATIENT
  Sex: Male

DRUGS (1)
  1. DIOVAN [Suspect]
     Route: 048

REACTIONS (4)
  - ALANINE AMINOTRANSFERASE INCREASED [None]
  - ASPARTATE AMINOTRANSFERASE INCREASED [None]
  - CARDIAC FAILURE [None]
  - LIVER FUNCTION TEST ABNORMAL [None]
